FAERS Safety Report 4320687-1 (Version None)
Quarter: 2004Q1

REPORT INFORMATION
  Report Type: 
  Country: None (occurrence: None)
  Receive Date: 20040315
  Receipt Date: 20031013
  Transmission Date: 20041129
  Serious: Yes (Hospitalization)
  Sender: FDA-Public Use
  Company Number: USA030947653

PATIENT
  Age: 64 Year
  Sex: Male
  Weight: 54 kg

DRUGS (2)
  1. GEMZAR [Suspect]
     Indication: PANCOAST'S TUMOUR
     Dosage: 800 MG/M2 WEEK
     Dates: start: 20030418, end: 20030516
  2. RADIATION THERAPY [Concomitant]

REACTIONS (1)
  - INTERSTITIAL LUNG DISEASE [None]
